FAERS Safety Report 24036392 (Version 1)
Quarter: 2024Q2

REPORT INFORMATION
  Report Type: Spontaneous
  Country: US (occurrence: None)
  Receive Date: 20240628
  Receipt Date: 20240628
  Transmission Date: 20240716
  Serious: Yes (Other)
  Sender: FDA-Public Use
  Company Number: None

PATIENT
  Age: 35 Year
  Sex: Female
  Weight: 58.97 kg

DRUGS (5)
  1. HUMALOG [Suspect]
     Active Substance: INSULIN LISPRO
  2. OMNIPOD DASH INSULIN PUMP [Concomitant]
  3. DEXCOM G7 CONTINUOUS GLUCOSE MONITOR [Concomitant]
  4. INSULIN PRO [Concomitant]
  5. GLUCAGON [Concomitant]
     Active Substance: GLUCAGON\GLUCAGON HYDROCHLORIDE\WATER

REACTIONS (2)
  - Localised lipodystrophy [None]
  - Skin indentation [None]

NARRATIVE: CASE EVENT DATE: 20240528
